FAERS Safety Report 13379357 (Version 2)
Quarter: 2017Q2

REPORT INFORMATION
  Report Type: Report from Study
  Country: CA (occurrence: CA)
  Receive Date: 20170328
  Receipt Date: 20170417
  Transmission Date: 20170830
  Serious: Yes (Death)
  Sender: FDA-Public Use
  Company Number: CA-HLSUS-2017-CA-000263

PATIENT
  Age: 49 Year
  Sex: Female
  Weight: 129.73 kg

DRUGS (13)
  1. APO- ROSUVASTATIN [Concomitant]
     Dosage: 1 TABLET AT BED TIME
     Route: 048
  2. TEVA-EZETIMIBE [Concomitant]
     Dosage: 1 TABLET AT BEDTIME
  3. SENNA [Concomitant]
     Active Substance: SENNA LEAF\SENNOSIDES\SENNOSIDES A AND B
     Dosage: 1 TABLET TWICE DAILY
     Route: 048
  4. APO-AMITRIPTYLINE [Concomitant]
     Active Substance: AMITRIPTYLINE HYDROCHLORIDE
     Dosage: 1 TABLET IN THE MORNING, 2 TABLETS AT BEDTIME
     Route: 048
  5. ADVIL [Concomitant]
     Active Substance: IBUPROFEN
  6. PMS- RAMIPRIL [Concomitant]
     Dosage: 1 CAPSULE ONCE DAILY
     Route: 048
  7. SUMATRIPTAN. [Concomitant]
     Active Substance: SUMATRIPTAN
     Dosage: 1 TABLET
     Route: 048
  8. JANUMET [Concomitant]
     Active Substance: METFORMIN HYDROCHLORIDE\SITAGLIPTIN PHOSPHATE
     Dosage: 1 TABLET TWICE DAILY
     Route: 048
  9. APO-GLICLAZIDE [Concomitant]
     Active Substance: GLICLAZIDE
     Dosage: 1 TABLET ONCE DAILY
     Route: 048
  10. SALBUTAMOL [Concomitant]
     Active Substance: ALBUTEROL
  11. MINT-PIOGLITAZONE [Concomitant]
     Dosage: 1 TABLET ONCE DAILY IN THE MORNING
     Route: 048
  12. TEVA-PANTOPRAZOLE MAGNESIUM [Concomitant]
     Active Substance: PANTOPRAZOLE MAGNESIUM
     Dosage: 1 TABLET ONCE DAILY 1 HOUR BEFORE BREAKFAST
  13. CLOZARIL [Suspect]
     Active Substance: CLOZAPINE
     Dosage: 100 MG, THREE TABLETS AT BEDTIME
     Route: 048
     Dates: start: 19920106

REACTIONS (1)
  - Myocardial infarction [Fatal]
